FAERS Safety Report 4539039-4 (Version None)
Quarter: 2004Q4

REPORT INFORMATION
  Report Type: 
  Country: None (occurrence: None)
  Receive Date: 20041222
  Receipt Date: 20041207
  Transmission Date: 20050328
  Serious: Yes (Hospitalization, Other)
  Sender: FDA-Public Use
  Company Number: USA-2004-0015446

PATIENT
  Age: 52 Year
  Sex: Female
  Weight: 54 kg

DRUGS (16)
  1. OXYCONTIN [Suspect]
     Indication: PAIN
     Dosage: SEE  IMAGE
  2. ROXICODONE CR [Concomitant]
  3. PREVACID [Concomitant]
  4. ATIVAN [Concomitant]
  5. AMBIEN [Concomitant]
  6. SOMA [Concomitant]
  7. PREDNISONE [Concomitant]
  8. VALIUM [Concomitant]
  9. TEGRETOL [Concomitant]
  10. RESTORIL [Concomitant]
  11. ESTRACE [Concomitant]
  12. PROVERA [Concomitant]
  13. MILK OF MAGNESIA (MAGNESIUM HYDROXIDE) [Concomitant]
  14. LIDOCAINE: PATCH (LIDOCAINE) [Concomitant]
  15. PHENERGAN [Concomitant]
  16. PIROXICAM [Concomitant]

REACTIONS (47)
  - ABDOMINAL PAIN [None]
  - ABDOMINAL PAIN LOWER [None]
  - ANAEMIA [None]
  - ANXIETY [None]
  - ARTHRALGIA [None]
  - ASTHENIA [None]
  - CHILLS [None]
  - CONDITION AGGRAVATED [None]
  - CONSTIPATION [None]
  - CONTUSION [None]
  - CYSTITIS INTERSTITIAL [None]
  - DEHYDRATION [None]
  - DEPRESSION [None]
  - DIARRHOEA [None]
  - DIVERTICULITIS [None]
  - DIVERTICULUM [None]
  - DRUG DEPENDENCE [None]
  - DRUG WITHDRAWAL SYNDROME [None]
  - FACIAL PAIN [None]
  - FEAR [None]
  - FLANK PAIN [None]
  - HAEMORRHAGE [None]
  - HEADACHE [None]
  - HYDRONEPHROSIS [None]
  - IDIOPATHIC THROMBOCYTOPENIC PURPURA [None]
  - INADEQUATE ANALGESIA [None]
  - INJURY [None]
  - INSOMNIA [None]
  - LEUKOPENIA [None]
  - LIVER FUNCTION TEST ABNORMAL [None]
  - LYMPHOCYTOSIS [None]
  - MIGRAINE [None]
  - MYALGIA [None]
  - NAUSEA [None]
  - NEUTROPENIA [None]
  - NIGHT SWEATS [None]
  - PAIN [None]
  - PAIN IN EXTREMITY [None]
  - PAIN IN JAW [None]
  - PARAESTHESIA [None]
  - PHARYNGOLARYNGEAL PAIN [None]
  - PHOTOPHOBIA [None]
  - POST PROCEDURAL COMPLICATION [None]
  - TRACHEOSTOMY [None]
  - TRIGEMINAL NEURALGIA [None]
  - VICTIM OF CRIME [None]
  - VOMITING [None]
